FAERS Safety Report 5059670-X (Version None)
Quarter: 2006Q3

REPORT INFORMATION
  Report Type: 
  Country: None (occurrence: None)
  Receive Date: 20060724
  Receipt Date: 20060322
  Transmission Date: 20061208
  Serious: Yes (Hospitalization)
  Sender: FDA-Public Use
  Company Number: US-ROCHE-441610

PATIENT
  Age: 49 Year
  Sex: Female
  Weight: 82.6 kg

DRUGS (6)
  1. BONIVA [Suspect]
     Indication: OSTEOPOROSIS
     Route: 048
     Dates: start: 20060303, end: 20060303
  2. NAPROXEN [Interacting]
     Indication: BACK PAIN
     Route: 048
     Dates: start: 20060225, end: 20060303
  3. VALIUM [Suspect]
     Indication: VERTIGO
     Route: 048
     Dates: start: 20060311, end: 20060320
  4. PRAVACHOL [Concomitant]
     Route: 048
  5. ZESTRIL [Concomitant]
     Indication: HYPERTENSION
     Route: 048
  6. PROPOXYPHENE NAPSYLATE AND ACETAMINOPHEN [Concomitant]
     Dates: start: 20060311, end: 20060321

REACTIONS (13)
  - CONSTIPATION [None]
  - DEPRESSION [None]
  - DIARRHOEA [None]
  - DIZZINESS [None]
  - DRUG INTERACTION [None]
  - DYSPEPSIA [None]
  - INTRAOCULAR PRESSURE INCREASED [None]
  - NUCLEAR MAGNETIC RESONANCE IMAGING BRAIN ABNORMAL [None]
  - NYSTAGMUS [None]
  - REFRACTION DISORDER [None]
  - VERTIGO [None]
  - VESTIBULAR NEURONITIS [None]
  - VOMITING [None]
